FAERS Safety Report 8842906 (Version 1)
Quarter: 2012Q4

REPORT INFORMATION
  Report Type: 
  Country: PT (occurrence: PT)
  Receive Date: 20121016
  Receipt Date: 20121016
  Transmission Date: 20130627
  Serious: Yes (Hospitalization)
  Sender: FDA-Public Use
  Company Number: PT-WATSON-2012-17627

PATIENT
  Age: 17 Year
  Sex: Female

DRUGS (3)
  1. CYCLOSPORINE (WATSON LABORATORIES) [Suspect]
     Indication: IMMUNOSUPPRESSION
     Dosage: UNK
     Route: 065
  2. TACROLIMUS (UNKNOWN) [Suspect]
     Indication: IMMUNOSUPPRESSION
     Dosage: UNK
     Route: 065
  3. TAMOXIFEN CITRATE [Suspect]
     Indication: IMMUNOSUPPRESSION
     Dosage: UNK
     Route: 065

REACTIONS (3)
  - Sclerosing encapsulating peritonitis [Recovered/Resolved]
  - Hepatocellular injury [Recovered/Resolved]
  - Staphylococcal infection [None]
